FAERS Safety Report 13817207 (Version 4)
Quarter: 2018Q1

REPORT INFORMATION
  Report Type: Report from Study
  Country: US (occurrence: US)
  Receive Date: 20170731
  Receipt Date: 20180314
  Transmission Date: 20180508
  Serious: Yes (Hospitalization, Other)
  Sender: FDA-Public Use
  Company Number: US-BAYER-2017-142308

PATIENT
  Age: 47 Year
  Sex: Male
  Weight: 81.18 kg

DRUGS (6)
  1. ADEMPAS [Suspect]
     Active Substance: RIOCIGUAT
     Indication: PULMONARY ARTERIAL HYPERTENSION
     Dosage: 1 MG, TID
     Route: 048
  2. ADEMPAS [Suspect]
     Active Substance: RIOCIGUAT
     Indication: PULMONARY ARTERIAL HYPERTENSION
     Dosage: 2.5 MG, TID
     Route: 048
  3. ADEMPAS [Suspect]
     Active Substance: RIOCIGUAT
     Indication: PULMONARY ARTERIAL HYPERTENSION
     Dosage: 1.0 MG, TID
     Route: 048
     Dates: start: 20180221
  4. ADEMPAS [Suspect]
     Active Substance: RIOCIGUAT
     Indication: PULMONARY HYPERTENSION
     Dosage: 0.5 MG, TID
     Route: 048
  5. ADEMPAS [Suspect]
     Active Substance: RIOCIGUAT
     Indication: PULMONARY ARTERIAL HYPERTENSION
     Dosage: UNK
     Dates: start: 20170630
  6. OPSUMIT [Concomitant]
     Active Substance: MACITENTAN
     Dosage: UNK

REACTIONS (10)
  - Hypertension [Unknown]
  - Chest pain [Not Recovered/Not Resolved]
  - Fatigue [Unknown]
  - Dyspnoea [None]
  - Impaired gastric emptying [None]
  - Cardiac procedure complication [None]
  - Dyspnoea exertional [Unknown]
  - Cholelithiasis [None]
  - Pneumonia [Unknown]
  - Catheterisation cardiac [None]

NARRATIVE: CASE EVENT DATE: 2018
